FAERS Safety Report 18179919 (Version 1)
Quarter: 2020Q3

REPORT INFORMATION
  Report Type: Other
  Country: TR (occurrence: TR)
  Receive Date: 20200821
  Receipt Date: 20200821
  Transmission Date: 20201103
  Serious: Yes (Other)
  Sender: FDA-Public Use
  Company Number: TR-ENCUBE-000005

PATIENT
  Age: 42 Year
  Sex: Female

DRUGS (1)
  1. DICLOFENAC SODIUM. [Suspect]
     Active Substance: DICLOFENAC SODIUM
     Indication: HEADACHE
     Route: 003

REACTIONS (4)
  - Drug abuse [Unknown]
  - Incorrect route of product administration [Unknown]
  - Skin ulcer [Unknown]
  - Thrombosis [Unknown]
